FAERS Safety Report 4953129-3 (Version None)
Quarter: 2006Q1

REPORT INFORMATION
  Report Type: 
  Country: None (occurrence: None)
  Receive Date: 20060320
  Receipt Date: 20051219
  Transmission Date: 20060701
  Serious: Yes (Hospitalization, Other)
  Sender: FDA-Public Use
  Company Number: 2006021160

PATIENT
  Age: 94 Year
  Sex: Female
  Weight: 62.6 kg

DRUGS (8)
  1. BEXTRA [Suspect]
     Indication: NECK PAIN
     Dosage: 10 MG
     Dates: start: 20030930, end: 20030101
  2. IMDUR [Concomitant]
  3. ALLOPURINOL [Concomitant]
  4. PINDOLOL [Concomitant]
  5. SULAR [Concomitant]
  6. PRINIVIL [Concomitant]
  7. LEAVAQUIN (LEVOLFOXACIN) [Concomitant]
  8. PREDNISONE TAB [Concomitant]

REACTIONS (12)
  - ASTHENIA [None]
  - CONFUSIONAL STATE [None]
  - CONJUNCTIVITIS [None]
  - FALL [None]
  - GENERAL PHYSICAL HEALTH DETERIORATION [None]
  - HIP FRACTURE [None]
  - IMPAIRED SELF-CARE [None]
  - PHARYNGEAL CANDIDIASIS [None]
  - PNEUMONITIS [None]
  - SKIN EXFOLIATION [None]
  - STEVENS-JOHNSON SYNDROME [None]
  - TRANSIENT ISCHAEMIC ATTACK [None]
